FAERS Safety Report 24093852 (Version 1)
Quarter: 2024Q3

REPORT INFORMATION
  Report Type: Report from Study
  Country: US (occurrence: US)
  Receive Date: 20240716
  Receipt Date: 20240716
  Transmission Date: 20241016
  Serious: Yes (Other)
  Sender: ABBVIE
  Company Number: US-ABBVIE-5691443

PATIENT
  Age: 45 Year
  Sex: Female

DRUGS (5)
  1. RINVOQ [Suspect]
     Active Substance: UPADACITINIB
     Indication: Eczema
     Dosage: 15 MG STRENGTH
     Route: 048
     Dates: start: 2021
  2. RINVOQ [Suspect]
     Active Substance: UPADACITINIB
     Indication: Eczema
     Dosage: 15 MG STRENGTH
     Route: 048
  3. PAROXETINE [Concomitant]
     Active Substance: PAROXETINE
     Indication: Hot flush
     Dates: start: 2023
  4. ATORVASTATIN [Concomitant]
     Active Substance: ATORVASTATIN
     Indication: Blood cholesterol
     Dates: start: 202301
  5. FENOFIBRATE [Concomitant]
     Active Substance: FENOFIBRATE
     Indication: Blood cholesterol
     Dates: start: 202301

REACTIONS (6)
  - Hysterectomy [Recovered/Resolved]
  - Endometrial thickening [Unknown]
  - Ovarian cyst [Recovered/Resolved]
  - Adenomyosis [Recovered/Resolved]
  - Oligomenorrhoea [Recovered/Resolved]
  - Oligomenorrhoea [Recovered/Resolved]

NARRATIVE: CASE EVENT DATE: 20231201
